FAERS Safety Report 6970806-3 (Version None)
Quarter: 2010Q3

REPORT INFORMATION
  Report Type: 
  Country: None (occurrence: None)
  Receive Date: 20100908
  Receipt Date: 20100827
  Transmission Date: 20110219
  Serious: Yes (Hospitalization)
  Sender: FDA-Public Use
  Company Number: A0879649A

PATIENT
  Age: 68 Year
  Sex: Female

DRUGS (1)
  1. AVANDIA [Suspect]
     Dates: start: 20060901, end: 20090201

REACTIONS (2)
  - ACUTE MYOCARDIAL INFARCTION [None]
  - PERIPHERAL ISCHAEMIA [None]
